FAERS Safety Report 6272090-5 (Version None)
Quarter: 2009Q3

REPORT INFORMATION
  Report Type: 
  Country: None (occurrence: None)
  Receive Date: 20090717
  Receipt Date: 20090707
  Transmission Date: 20100115
  Serious: Yes (Hospitalization)
  Sender: FDA-Public Use
  Company Number: B0577511A

PATIENT
  Age: 20 Year
  Sex: Male

DRUGS (5)
  1. LAMICTAL [Suspect]
     Indication: DRUG USE FOR UNKNOWN INDICATION
     Dosage: 2.5MG PER DAY
     Route: 048
     Dates: start: 20090508, end: 20090525
  2. DEPAKENE [Concomitant]
     Dosage: 400MG PER DAY
     Route: 048
     Dates: start: 20060310, end: 20060324
  3. DEPAKENE [Concomitant]
     Dosage: 800MG PER DAY
     Route: 048
     Dates: start: 20060325, end: 20060417
  4. DEPAKENE [Concomitant]
     Route: 048
     Dates: start: 20060418, end: 20060511
  5. DEPAKENE [Concomitant]
     Dosage: 1200MG PER DAY
     Route: 048
     Dates: start: 20060512

REACTIONS (8)
  - DECREASED APPETITE [None]
  - DRUG ERUPTION [None]
  - FATIGUE [None]
  - LIVER DISORDER [None]
  - PROTHROMBIN LEVEL DECREASED [None]
  - PROTHROMBIN TIME PROLONGED [None]
  - PRURITUS [None]
  - RASH [None]
